FAERS Safety Report 23605149 (Version 1)
Quarter: 2024Q1

REPORT INFORMATION
  Report Type: Other
  Country: IT (occurrence: IT)
  Receive Date: 20240307
  Receipt Date: 20240307
  Transmission Date: 20240410
  Serious: Yes (Hospitalization)
  Sender: FDA-Public Use
  Company Number: IT-DEXPHARM-2024-0468

PATIENT
  Age: 52 Year
  Sex: Male

DRUGS (5)
  1. LEVETIRACETAM [Suspect]
     Active Substance: LEVETIRACETAM
     Indication: Myoclonic epilepsy
  2. LAMOTRIGINE [Suspect]
     Active Substance: LAMOTRIGINE
     Indication: Myoclonic epilepsy
  3. VALPROIC ACID [Suspect]
     Active Substance: VALPROIC ACID
  4. VALPROIC ACID [Suspect]
     Active Substance: VALPROIC ACID
  5. VALPROIC ACID [Suspect]
     Active Substance: VALPROIC ACID

REACTIONS (4)
  - Catatonia [Recovered/Resolved]
  - Change in seizure presentation [Recovered/Resolved]
  - Aggression [Recovered/Resolved]
  - Anxiety [Recovered/Resolved]
